FAERS Safety Report 5007163-8 (Version None)
Quarter: 2006Q1

REPORT INFORMATION
  Report Type: 
  Country: None (occurrence: None)
  Receive Date: 20060327
  Receipt Date: 20060113
  Transmission Date: 20060701
  Serious: No
  Sender: FDA-Public Use
  Company Number: 220320

PATIENT
  Age: 55 Year
  Sex: Male
  Weight: 106.1 kg

DRUGS (1)
  1. AVASTIN [Suspect]
     Indication: NON-SMALL CELL LUNG CANCER
     Dosage: 10 MG/KG, INTRAVENOUS
     Route: 042
     Dates: start: 20051128

REACTIONS (1)
  - CHILLS [None]
